FAERS Safety Report 24665750 (Version 4)
Quarter: 2024Q4

REPORT INFORMATION
  Report Type: Spontaneous
  Country: US (occurrence: US)
  Receive Date: 20241126
  Receipt Date: 20241127
  Transmission Date: 20250115
  Serious: No
  Sender: ROCHE
  Company Number: US-ROCHE-10000138959

PATIENT
  Sex: Female
  Weight: 77.11 kg

DRUGS (4)
  1. OCREVUS [Suspect]
     Active Substance: OCRELIZUMAB
     Indication: Relapsing-remitting multiple sclerosis
     Route: 065
  2. LISINOPRIL [Concomitant]
     Active Substance: LISINOPRIL
  3. MELOXICAM [Concomitant]
     Active Substance: MELOXICAM
  4. BUPROPION [Concomitant]
     Active Substance: BUPROPION

REACTIONS (2)
  - COVID-19 [Recovered/Resolved]
  - Mobility decreased [Unknown]
